FAERS Safety Report 23746703 (Version 1)
Quarter: 2024Q2

REPORT INFORMATION
  Report Type: Spontaneous
  Country: PR (occurrence: PR)
  Receive Date: 20240416
  Receipt Date: 20240416
  Transmission Date: 20240717
  Serious: No
  Sender: FDA-Public Use
  Company Number: PR-UNITED THERAPEUTICS-UNT-2024-010795

PATIENT
  Age: 89 Year
  Sex: Female

DRUGS (2)
  1. TYVASO [Suspect]
     Active Substance: TREPROSTINIL
     Indication: Product used for unknown indication
     Dosage: UNK
     Dates: start: 202402
  2. DUPIXENT [Concomitant]
     Active Substance: DUPILUMAB
     Indication: Asthma
     Dosage: 300 MG, QOW (EVERY OTHER WEEK)
     Route: 058
     Dates: start: 20230119

REACTIONS (4)
  - Dyspnoea [Unknown]
  - Chest discomfort [Unknown]
  - Decreased appetite [Unknown]
  - Weight decreased [Unknown]

NARRATIVE: CASE EVENT DATE: 20240201
